FAERS Safety Report 8604887 (Version 3)
Quarter: 2013Q4

REPORT INFORMATION
  Report Type: Spontaneous
  Country: US (occurrence: US)
  Receive Date: 20120608
  Receipt Date: 20131108
  Transmission Date: 20140711
  Serious: Yes (Hospitalization)
  Sender: FDA-Public Use
  Company Number: US-US-EMD SERONO, INC.-7137391

PATIENT
  Sex: Male

DRUGS (3)
  1. REBIF [Suspect]
     Indication: MULTIPLE SCLEROSIS
     Route: 058
     Dates: start: 20020903
  2. REBIF [Suspect]
     Route: 058
     Dates: end: 201303
  3. REBIF [Suspect]
     Route: 058
     Dates: start: 201304

REACTIONS (6)
  - Large intestine perforation [Unknown]
  - Pneumonia [Unknown]
  - Urinary tract infection [Unknown]
  - Volvulus [Unknown]
  - Injection site erythema [Recovered/Resolved]
  - White blood cell count decreased [Recovered/Resolved]
